FAERS Safety Report 5195285-0 (Version None)
Quarter: 2006Q4

REPORT INFORMATION
  Report Type: 
  Country: None (occurrence: None)
  Receive Date: 20061229
  Receipt Date: 20061204
  Transmission Date: 20070319
  Serious: Yes (Other)
  Sender: FDA-Public Use
  Company Number: JP-PFIZER INC-2006150519

PATIENT
  Sex: Male
  Weight: 56 kg

DRUGS (2)
  1. IDAMYCIN SOLUTION, STERILE [Suspect]
     Indication: ACUTE MYELOID LEUKAEMIA
     Dosage: DAILY DOSE:12MG
     Route: 042
     Dates: start: 20061128, end: 20061128
  2. SUNRABIN [Suspect]
     Indication: ACUTE MYELOID LEUKAEMIA
     Dosage: DAILY DOSE:240MG
     Route: 042
     Dates: start: 20061128, end: 20061128

REACTIONS (3)
  - CHEST DISCOMFORT [None]
  - INTERSTITIAL LUNG DISEASE [None]
  - RENAL FAILURE [None]
